FAERS Safety Report 10554772 (Version 1)
Quarter: 2014Q4

REPORT INFORMATION
  Report Type: Spontaneous
  Country: US (occurrence: US)
  Receive Date: 20141030
  Receipt Date: 20141030
  Transmission Date: 20150529
  Serious: No
  Sender: FDA-Public Use
  Company Number: US-BAYER-2014-154530

PATIENT
  Age: 77 Year
  Sex: Female
  Weight: 43.84 kg

DRUGS (5)
  1. ALEVE PM [Suspect]
     Active Substance: DIPHENHYDRAMINE HYDROCHLORIDE\NAPROXEN SODIUM
     Indication: ANALGESIC THERAPY
     Dosage: 1 DF, ONCE
     Route: 048
     Dates: start: 201410, end: 201410
  2. VITAMIN E [Concomitant]
     Active Substance: .ALPHA.-TOCOPHEROL
  3. LORATADINE. [Concomitant]
     Active Substance: LORATADINE
  4. CALCIUM [Concomitant]
     Active Substance: CALCIUM
  5. VITAMIN D [Concomitant]
     Active Substance: CHOLECALCIFEROL
     Dosage: UNK

REACTIONS (1)
  - Hypersomnia [Recovered/Resolved]

NARRATIVE: CASE EVENT DATE: 201410
